FAERS Safety Report 9277878 (Version 1)
Quarter: 2013Q2

REPORT INFORMATION
  Report Type: Report from Study
  Country: FR (occurrence: FR)
  Receive Date: 20130508
  Receipt Date: 20130508
  Transmission Date: 20140414
  Serious: Yes (Hospitalization)
  Sender: FDA-Public Use
  Company Number: PHHO2011FR09985

PATIENT
  Age: 51 Year
  Sex: Male
  Weight: 72 kg

DRUGS (2)
  1. SOM230 [Suspect]
     Indication: NEUROENDOCRINE TUMOUR
     Dosage: 60 MG, UNK
     Route: 030
     Dates: start: 20100617, end: 20110324
  2. SOM230 [Suspect]
     Dosage: DOSE REDUCED TO 40 MG
     Route: 030
     Dates: start: 20110325, end: 20110518

REACTIONS (1)
  - Cholecystitis acute [Recovered/Resolved]
